FAERS Safety Report 23154481 (Version 1)
Quarter: 2023Q4

REPORT INFORMATION
  Report Type: Spontaneous
  Country: US (occurrence: US)
  Receive Date: 20231107
  Receipt Date: 20231107
  Transmission Date: 20240109
  Serious: No
  Sender: FDA-Public Use
  Company Number: US-ELI_LILLY_AND_COMPANY-US202311001290

PATIENT
  Sex: Male

DRUGS (3)
  1. JAYPIRCA [Suspect]
     Active Substance: PIRTOBRUTINIB
     Indication: Mantle cell lymphoma
     Dosage: 50 MG, BID (2 PILLS)
     Route: 048
  2. JAYPIRCA [Suspect]
     Active Substance: PIRTOBRUTINIB
     Dosage: 50 MG, DAILY (1 PILL)
     Route: 048
  3. TYLENOL [Concomitant]
     Active Substance: ACETAMINOPHEN
     Indication: Product used for unknown indication
     Dosage: UNK UNK, UNKNOWN

REACTIONS (8)
  - Illness [Unknown]
  - Feeling abnormal [Unknown]
  - General physical health deterioration [Unknown]
  - Myalgia [Unknown]
  - Sinusitis [Unknown]
  - Arthralgia [Unknown]
  - Asthenia [Unknown]
  - Lethargy [Unknown]
